FAERS Safety Report 17397020 (Version 1)
Quarter: 2020Q1

REPORT INFORMATION
  Report Type: Spontaneous
  Country: US (occurrence: US)
  Receive Date: 20200207
  Receipt Date: 20200207
  Transmission Date: 20200409
  Serious: No
  Sender: FDA-Public Use
  Company Number: None

PATIENT
  Age: 76 Year
  Sex: Female
  Weight: 51.75 kg

DRUGS (3)
  1. RIBAVIRIN. [Concomitant]
     Active Substance: RIBAVIRIN
     Dates: start: 20200207
  2. RITONAVIR. [Concomitant]
     Active Substance: RITONAVIR
     Dates: start: 20200204, end: 20200207
  3. RITONAVIR. [Suspect]
     Active Substance: RITONAVIR
     Route: 048
     Dates: start: 20200204, end: 20200207

REACTIONS (3)
  - Incorrect dose administered [None]
  - Transcription medication error [None]
  - Product dispensing error [None]

NARRATIVE: CASE EVENT DATE: 20200207
